FAERS Safety Report 20206193 (Version 1)
Quarter: 2021Q4

REPORT INFORMATION
  Report Type: Spontaneous
  Country: US (occurrence: US)
  Receive Date: 20211220
  Receipt Date: 20211220
  Transmission Date: 20220303
  Serious: No
  Sender: FDA-Public Use
  Company Number: US-SA-SAC20211214000601

PATIENT
  Age: 42 Year
  Sex: Female

DRUGS (2)
  1. DUPIXENT [Suspect]
     Active Substance: DUPILUMAB
     Indication: Dermatitis allergic
     Dosage: 300 MG (FREQUENCY:OTHER)
     Route: 058
     Dates: start: 202108
  2. DUPIXENT [Suspect]
     Active Substance: DUPILUMAB
     Dosage: 300MG (FREQUENCY:OTHER)

REACTIONS (3)
  - Oral herpes [Unknown]
  - Product dose omission in error [Unknown]
  - Product use in unapproved indication [Unknown]

NARRATIVE: CASE EVENT DATE: 20210801
